FAERS Safety Report 9406536 (Version 3)
Quarter: 2013Q4

REPORT INFORMATION
  Report Type: Spontaneous
  Country: DE (occurrence: DE)
  Receive Date: 20130718
  Receipt Date: 20131111
  Transmission Date: 20140711
  Serious: Yes (Other)
  Sender: FDA-Public Use
  Company Number: DE-009507513-1307DEU002562

PATIENT
  Age: 61 Year
  Sex: Female
  Weight: 56 kg

DRUGS (7)
  1. REBETOL [Suspect]
     Indication: CHRONIC HEPATITIS C
     Dosage: 200 MG 8 CAPSULES , TID
     Route: 048
     Dates: start: 199810
  2. REBETOL [Suspect]
     Dosage: 200 MG  2 CAPSULES, BID
     Route: 048
     Dates: start: 199901, end: 199906
  3. REBETOL [Suspect]
     Dosage: UNK
     Dates: start: 2000, end: 2001
  4. INTERFERON ALFA-2B [Suspect]
     Indication: CHRONIC HEPATITIS C
     Dosage: UNK UNK, Q3W
     Route: 058
     Dates: start: 199810
  5. INTERFERON ALFA-2B [Suspect]
     Dosage: UNK, QW
     Route: 058
     Dates: start: 199901, end: 199906
  6. INTERFERON ALFA-2B [Suspect]
     Dosage: UNK
     Dates: end: 2000
  7. PEGINTRON [Suspect]
     Indication: CHRONIC HEPATITIS C
     Dosage: UNK
     Dates: start: 2000, end: 2001

REACTIONS (15)
  - Tooth loss [Recovered/Resolved with Sequelae]
  - Bone loss [Recovered/Resolved with Sequelae]
  - Tongue exfoliation [Recovered/Resolved with Sequelae]
  - Night blindness [Recovered/Resolved with Sequelae]
  - Gingival erythema [Recovered/Resolved with Sequelae]
  - Pulpitis dental [Recovered/Resolved with Sequelae]
  - Dry eye [Recovered/Resolved with Sequelae]
  - Tooth abscess [Unknown]
  - Dysarthria [Unknown]
  - Hair colour changes [Unknown]
  - Dry skin [Not Recovered/Not Resolved]
  - Alopecia [Recovered/Resolved with Sequelae]
  - Alopecia [Unknown]
  - No therapeutic response [Unknown]
  - Tooth disorder [Unknown]
